FAERS Safety Report 7134270-6 (Version None)
Quarter: 2010Q4

REPORT INFORMATION
  Report Type: 
  Country: None (occurrence: None)
  Receive Date: 20101203
  Receipt Date: 20101201
  Transmission Date: 20110411
  Serious: Yes (Other)
  Sender: FDA-Public Use
  Company Number: CO-B.I. PHARMACEUTICALS,INC./RIDGEFIELD-2010-RA-00490RA

PATIENT
  Age: 55 Year
  Sex: Female
  Weight: 65 kg

DRUGS (2)
  1. DABIGATRAN ETEXILATE [Suspect]
     Indication: THROMBOSIS PROPHYLAXIS
     Dosage: 220 MG
     Route: 048
     Dates: start: 20100901
  2. DOLEX [Concomitant]
     Indication: POSTOPERATIVE ANALGESIA
     Route: 048
     Dates: start: 20100901

REACTIONS (2)
  - DEEP VEIN THROMBOSIS [None]
  - OEDEMA [None]
